FAERS Safety Report 13502389 (Version 1)
Quarter: 2017Q2

REPORT INFORMATION
  Report Type: Spontaneous
  Country: FI (occurrence: FI)
  Receive Date: 20170502
  Receipt Date: 20170502
  Transmission Date: 20170830
  Serious: Yes (Other)
  Sender: FDA-Public Use
  Company Number: FI-AMGEN-FINSP2017046052

PATIENT
  Age: 7 Year
  Sex: Male

DRUGS (7)
  1. TUBILYSIN [Concomitant]
     Active Substance: ISONIAZID
     Indication: TUBERCULOSIS
     Dosage: 300 MG, 1X/DAY
     Dates: start: 2016
  2. PRONAXEN [Concomitant]
     Active Substance: NAPROXEN
     Dosage: 250 MG 1/2+1, AS NEEDED
  3. ENBREL [Suspect]
     Active Substance: ETANERCEPT
     Indication: PRODUCT USED FOR UNKNOWN INDICATION
     Dosage: 25 MG, WEEKLY (0.88 MG/KG)
     Route: 065
     Dates: start: 201607, end: 20161208
  4. PAMOL F [Concomitant]
     Dosage: 250 MG, AS NEEDED
  5. MINIRIN [Concomitant]
     Active Substance: DESMOPRESSIN ACETATE
     Dosage: 240 UG, 1X/DAY
  6. PEGORION [Concomitant]
     Active Substance: POLYETHYLENE GLYCOL 4000
     Dosage: 6 G, 1X/DAY, AS NEEDED
  7. SOMAC [Concomitant]
     Active Substance: PANTOPRAZOLE SODIUM
     Dosage: 20 MG, 1X/DAY, AS NEEDED

REACTIONS (7)
  - Anger [Recovered/Resolved]
  - Psychiatric symptom [Recovered/Resolved]
  - Psychomotor hyperactivity [Recovered/Resolved]
  - Irritability [Recovered/Resolved]
  - Restlessness [Recovered/Resolved]
  - Tearfulness [Recovered/Resolved]
  - Fatigue [Recovered/Resolved]
